FAERS Safety Report 13303763 (Version 1)
Quarter: 2017Q1

REPORT INFORMATION
  Report Type: Spontaneous
  Country: HR (occurrence: HR)
  Receive Date: 20170307
  Receipt Date: 20170307
  Transmission Date: 20170428
  Serious: Yes (Life-Threatening)
  Sender: FDA-Public Use
  Company Number: HR-ABBVIE-17P-216-1899294-00

PATIENT
  Age: 36 Year
  Sex: Male

DRUGS (3)
  1. LAMICTAL [Concomitant]
     Active Substance: LAMOTRIGINE
     Indication: PRODUCT USED FOR UNKNOWN INDICATION
  2. DEPAKINE CHRONO [Suspect]
     Active Substance: VALPROATE SODIUM
     Indication: EPILEPSY
     Dosage: EXTENDED RELEASE
     Route: 048
     Dates: start: 20170223
  3. TRILEPTAL [Concomitant]
     Active Substance: OXCARBAZEPINE
     Indication: PRODUCT USED FOR UNKNOWN INDICATION

REACTIONS (11)
  - Generalised tonic-clonic seizure [Unknown]
  - Apathy [Unknown]
  - Tremor [Unknown]
  - Gastrointestinal pain [Unknown]
  - Decreased appetite [Unknown]
  - Muscle spasms [Unknown]
  - Dyspnoea [Unknown]
  - Urticaria [Unknown]
  - Fatigue [Unknown]
  - Cyanosis [Unknown]
  - Back pain [Unknown]

NARRATIVE: CASE EVENT DATE: 20170226
